FAERS Safety Report 12417622 (Version 1)
Quarter: 2016Q2

REPORT INFORMATION
  Report Type: Report from Study
  Country: US (occurrence: US)
  Receive Date: 20160530
  Receipt Date: 20160530
  Transmission Date: 20160815
  Serious: Yes (Hospitalization, Other)
  Sender: FDA-Public Use
  Company Number: PHHY2016US071264

PATIENT
  Age: 59 Year
  Sex: Female
  Weight: 104.5 kg

DRUGS (88)
  1. GILENYA [Suspect]
     Active Substance: FINGOLIMOD HYDROCHLORIDE
     Indication: RELAPSING-REMITTING MULTIPLE SCLEROSIS
     Dosage: 0.5 MG, QD
     Route: 048
     Dates: start: 20140905, end: 201509
  2. SODIUM CHLORIDE. [Concomitant]
     Active Substance: SODIUM CHLORIDE
     Indication: PRODUCT USED FOR UNKNOWN INDICATION
     Dosage: 500 ML, QD
     Route: 040
     Dates: start: 20151120, end: 20151120
  3. SODIUM CHLORIDE. [Concomitant]
     Active Substance: SODIUM CHLORIDE
     Indication: PRODUCT USED FOR UNKNOWN INDICATION
     Dosage: 75 ML/HR CONTINUOUS
     Route: 041
     Dates: start: 20151120
  4. DILAUDID [Concomitant]
     Active Substance: HYDROMORPHONE HYDROCHLORIDE
     Dosage: 1 MG, Q4H, PRN
     Route: 042
     Dates: start: 20151121
  5. DILAUDID [Concomitant]
     Active Substance: HYDROMORPHONE HYDROCHLORIDE
     Dosage: 1 MG, Q4H, PRN
     Route: 042
     Dates: start: 20151122
  6. VENOFER [Concomitant]
     Active Substance: IRON SUCROSE
     Dosage: 200 MG, QD
     Dates: start: 20151123, end: 20151123
  7. ZOFRAN [Concomitant]
     Active Substance: ONDANSETRON HYDROCHLORIDE
     Indication: VOMITING
     Dosage: 4 MG, Q4H, PRN
     Route: 042
     Dates: start: 20151122
  8. PANTOPRAZOL [Concomitant]
     Active Substance: PANTOPRAZOLE SODIUM
     Dosage: 40 MG, Q12H
     Route: 042
     Dates: start: 20151121
  9. POLYETHYLENE GLYCOL 3350. [Concomitant]
     Active Substance: POLYETHYLENE GLYCOL 3350
     Indication: PRODUCT USED FOR UNKNOWN INDICATION
     Dosage: 17 G, QD
     Route: 048
     Dates: start: 20151031, end: 20151105
  10. CLEOCIN [Concomitant]
     Active Substance: CLINDAMYCIN PHOSPHATE
     Indication: PRODUCT USED FOR UNKNOWN INDICATION
     Dosage: 600 MG, Q8H
     Route: 042
     Dates: start: 20151027
  11. FENTANYL CITRATE AND BUPIVACAINE HCL [Concomitant]
     Indication: PRODUCT USED FOR UNKNOWN INDICATION
     Dosage: UNK
     Route: 008
     Dates: start: 20151027
  12. HEPARIN [Concomitant]
     Active Substance: HEPARIN SODIUM
     Indication: PRODUCT USED FOR UNKNOWN INDICATION
     Dosage: 5000 U, QD
     Route: 058
     Dates: start: 20151027
  13. SODIUM CHLORIDE. [Concomitant]
     Active Substance: SODIUM CHLORIDE
     Dosage: 3 ML, TID
     Route: 042
     Dates: start: 20151121
  14. SODIUM CHLORIDE. [Concomitant]
     Active Substance: SODIUM CHLORIDE
     Dosage: 3 ML, TID
     Route: 042
     Dates: start: 20151121
  15. SODIUM CHLORIDE. [Concomitant]
     Active Substance: SODIUM CHLORIDE
     Dosage: 3 ML, TID
     Route: 042
     Dates: start: 20151122
  16. SODIUM CHLORIDE. [Concomitant]
     Active Substance: SODIUM CHLORIDE
     Dosage: 3 ML, TID
     Dates: start: 20151123
  17. VENOFER [Concomitant]
     Active Substance: IRON SUCROSE
     Dosage: 200 MG, QD
     Route: 042
     Dates: start: 20151122
  18. XYLOCAINE [Concomitant]
     Active Substance: LIDOCAINE HYDROCHLORIDE
     Indication: VENTRICULAR TACHYCARDIA
     Dosage: 50-100 MG, PRN
     Route: 042
     Dates: start: 20151120, end: 20151123
  19. ZOFRAN [Concomitant]
     Active Substance: ONDANSETRON HYDROCHLORIDE
     Dosage: 4 MG, Q4H, PRN
     Dates: start: 20151122
  20. ZOFRAN [Concomitant]
     Active Substance: ONDANSETRON HYDROCHLORIDE
     Dosage: 4 MG, Q4H, PRN
     Route: 042
     Dates: start: 20151123, end: 20151123
  21. OFIRMEV [Concomitant]
     Active Substance: ACETAMINOPHEN
     Indication: PRODUCT USED FOR UNKNOWN INDICATION
     Dosage: 1000 MG, Q6H
     Route: 042
     Dates: start: 20151028
  22. FLUVACCIN [Concomitant]
     Active Substance: INFLUENZA VIRUS VACCINE
     Indication: ANTIVIRAL PROPHYLAXIS
     Dosage: UNK
     Route: 065
     Dates: start: 20140916, end: 20140916
  23. SODIUM CHLORIDE. [Concomitant]
     Active Substance: SODIUM CHLORIDE
     Dosage: 75 ML/HR CONTINUOUS
     Route: 041
     Dates: start: 20151121
  24. SODIUM CHLORIDE. [Concomitant]
     Active Substance: SODIUM CHLORIDE
     Dosage: 3 ML, TID
     Route: 042
     Dates: start: 20151122
  25. TYLENOL [Concomitant]
     Active Substance: ACETAMINOPHEN
     Indication: PYREXIA
     Dosage: 1000 MG, Q6H
     Route: 048
     Dates: start: 20151102, end: 20151105
  26. DILAUDID [Concomitant]
     Active Substance: HYDROMORPHONE HYDROCHLORIDE
     Dosage: 1 MG, Q4H, PRN
     Route: 042
     Dates: start: 20151122
  27. DILAUDID [Concomitant]
     Active Substance: HYDROMORPHONE HYDROCHLORIDE
     Dosage: 1 MG, Q4H, PRN
     Route: 042
     Dates: start: 20151123
  28. VENOFER [Concomitant]
     Active Substance: IRON SUCROSE
     Dosage: 200 MG, QD
     Route: 042
     Dates: start: 20151122
  29. ZOFRAN [Concomitant]
     Active Substance: ONDANSETRON HYDROCHLORIDE
     Indication: NAUSEA
     Dosage: 4 MG, Q4H, PRN
     Route: 042
     Dates: start: 20151122
  30. ZOFRAN [Concomitant]
     Active Substance: ONDANSETRON HYDROCHLORIDE
     Indication: PRODUCT USED FOR UNKNOWN INDICATION
     Dosage: 4 MG, QD
     Route: 048
     Dates: start: 20151120, end: 20151120
  31. PANTOPRAZOL [Concomitant]
     Active Substance: PANTOPRAZOLE SODIUM
     Dosage: 40 MG, Q12H
     Route: 042
     Dates: start: 20151122
  32. NORCO [Concomitant]
     Active Substance: ACETAMINOPHEN\HYDROCODONE BITARTRATE
     Indication: PRODUCT USED FOR UNKNOWN INDICATION
     Dosage: 1 DF, EVERY 6 HOUR,  PRN
     Route: 048
     Dates: start: 20150107
  33. DEXTROSE. [Concomitant]
     Active Substance: DEXTROSE
     Indication: PRODUCT USED FOR UNKNOWN INDICATION
     Dosage: 5-30 ML/HR, CONTINUOUS
     Route: 042
     Dates: start: 20151029, end: 20151105
  34. DURAGESIC [Concomitant]
     Active Substance: FENTANYL
     Indication: PRODUCT USED FOR UNKNOWN INDICATION
     Dosage: 1 DF, Q72H
     Route: 062
     Dates: start: 20151027, end: 20151105
  35. ELIQUIS [Concomitant]
     Active Substance: APIXABAN
     Indication: PRODUCT USED FOR UNKNOWN INDICATION
     Dosage: 1 DF, BID
     Route: 048
     Dates: start: 20151105, end: 20151105
  36. CAMBIA [Concomitant]
     Active Substance: DICLOFENAC POTASSIUM
     Indication: HEADACHE
     Dosage: UNK
     Route: 065
     Dates: start: 20140723, end: 20140723
  37. LOVENOX [Suspect]
     Active Substance: ENOXAPARIN SODIUM
     Dosage: 1 MG/KG, BID (STENGTH: 120 MG)
     Route: 058
     Dates: start: 20151121, end: 20151123
  38. TYLENOL [Concomitant]
     Active Substance: ACETAMINOPHEN
     Indication: PAIN
     Dosage: 650 MG, Q4H, PRN
     Route: 048
     Dates: start: 20151121
  39. TYLENOL [Concomitant]
     Active Substance: ACETAMINOPHEN
     Indication: PAIN
     Dosage: (325-500), Q4H, PRN
     Route: 054
     Dates: start: 20151120, end: 20151123
  40. CATHFLO ACTIVASE [Concomitant]
     Active Substance: ALTEPLASE
     Indication: PRODUCT USED FOR UNKNOWN INDICATION
     Dosage: 2 MG, QD
     Route: 065
     Dates: start: 20151122, end: 20151122
  41. DILAUDID [Concomitant]
     Active Substance: HYDROMORPHONE HYDROCHLORIDE
     Dosage: 1 MG, Q4H, PRN
     Route: 042
     Dates: start: 20151123
  42. VENOFER [Concomitant]
     Active Substance: IRON SUCROSE
     Dosage: 200 MG, QD
     Route: 042
     Dates: start: 20151123
  43. XYLOCAINE [Concomitant]
     Active Substance: LIDOCAINE HYDROCHLORIDE
     Dosage: 1-2 MG, AS DIRECTED
     Route: 023
     Dates: start: 20151027, end: 20151105
  44. NITROSTAT [Concomitant]
     Active Substance: NITROGLYCERIN
     Indication: CHEST PAIN
     Dosage: 0.4 MG, EVERY 5 MINUTES, PRN
     Route: 060
     Dates: start: 20151120, end: 20151123
  45. PANTOPRAZOL [Concomitant]
     Active Substance: PANTOPRAZOLE SODIUM
     Dosage: 40 MG, Q12H
     Route: 042
     Dates: start: 20151123, end: 20151123
  46. DURAGESIC [Concomitant]
     Active Substance: FENTANYL
     Indication: PRODUCT USED FOR UNKNOWN INDICATION
     Dosage: 1 DF, Q72H
     Route: 062
     Dates: start: 20151027, end: 20151105
  47. SODIUM CHLORIDE. [Concomitant]
     Active Substance: SODIUM CHLORIDE
     Indication: PRODUCT USED FOR UNKNOWN INDICATION
     Dosage: 250 ML, PRN
     Route: 040
     Dates: start: 20151120, end: 20151123
  48. SODIUM CHLORIDE. [Concomitant]
     Active Substance: SODIUM CHLORIDE
     Dosage: 3 ML, TID
     Route: 042
     Dates: start: 20151123, end: 20151123
  49. TYLENOL [Concomitant]
     Active Substance: ACETAMINOPHEN
     Indication: PYREXIA
     Dosage: 650 MG, Q4H, PRN
     Route: 048
     Dates: start: 20151123, end: 20151123
  50. LASIX [Concomitant]
     Active Substance: FUROSEMIDE
     Indication: PRODUCT USED FOR UNKNOWN INDICATION
     Dosage: 20 MG, QD
     Route: 042
     Dates: start: 20151120, end: 20151120
  51. DILAUDID [Concomitant]
     Active Substance: HYDROMORPHONE HYDROCHLORIDE
     Dosage: 1 MG, Q4H, PRN
     Dates: start: 20151121
  52. DILAUDID [Concomitant]
     Active Substance: HYDROMORPHONE HYDROCHLORIDE
     Dosage: 1 MG, Q4H, PRN
     Route: 042
     Dates: start: 20151121
  53. DILAUDID [Concomitant]
     Active Substance: HYDROMORPHONE HYDROCHLORIDE
     Dosage: 1 MG, Q4H, PRN
     Route: 042
     Dates: start: 20151122
  54. DILAUDID [Concomitant]
     Active Substance: HYDROMORPHONE HYDROCHLORIDE
     Dosage: 1 MG, Q4H, PRN
     Route: 042
     Dates: start: 20151122
  55. DILAUDID [Concomitant]
     Active Substance: HYDROMORPHONE HYDROCHLORIDE
     Dosage: 1 MG, Q4H, PRN
     Route: 042
     Dates: start: 20151123
  56. DILAUDID [Concomitant]
     Active Substance: HYDROMORPHONE HYDROCHLORIDE
     Dosage: 1 MG, Q4H, PRN
     Route: 042
     Dates: start: 20151123
  57. LOVENOX [Suspect]
     Active Substance: ENOXAPARIN SODIUM
     Indication: PRODUCT USED FOR UNKNOWN INDICATION
     Dosage: 1 ML, Q12H (STRENGHT: 100 MG)
     Dates: start: 20151104, end: 20151112
  58. SODIUM CHLORIDE. [Concomitant]
     Active Substance: SODIUM CHLORIDE
     Dosage: 75 ML/HR CONTINUOUS
     Route: 041
     Dates: start: 20151121
  59. SODIUM CHLORIDE. [Concomitant]
     Active Substance: SODIUM CHLORIDE
     Dosage: 3 ML, TID
     Route: 042
     Dates: start: 20151122
  60. TYLENOL [Concomitant]
     Active Substance: ACETAMINOPHEN
     Dosage: 2 DF, (500 MG), Q6H
     Route: 048
     Dates: start: 20151104
  61. DURAGESIC [Concomitant]
     Active Substance: FENTANYL
     Indication: PRODUCT USED FOR UNKNOWN INDICATION
     Dosage: 1 DF, EVERY 3 DAYS
     Route: 065
     Dates: start: 20151123, end: 20151123
  62. DILAUDID [Concomitant]
     Active Substance: HYDROMORPHONE HYDROCHLORIDE
     Dosage: 1 MG, Q4H,PRN
     Route: 042
     Dates: start: 20151121
  63. DILAUDID [Concomitant]
     Active Substance: HYDROMORPHONE HYDROCHLORIDE
     Dosage: 1 MG, Q4H, PRN
     Route: 042
     Dates: start: 20151121
  64. DILAUDID [Concomitant]
     Active Substance: HYDROMORPHONE HYDROCHLORIDE
     Dosage: 1 MG, Q4H, PRN
     Route: 042
     Dates: start: 20151122
  65. VENOFER [Concomitant]
     Active Substance: IRON SUCROSE
     Indication: PRODUCT USED FOR UNKNOWN INDICATION
     Dosage: 200 MG, QD
     Route: 042
     Dates: start: 20151121
  66. PANTOPRAZOL [Concomitant]
     Active Substance: PANTOPRAZOLE SODIUM
     Indication: PRODUCT USED FOR UNKNOWN INDICATION
     Dosage: 80 MG, QD
     Route: 042
     Dates: start: 20151120, end: 20151120
  67. PANTOPRAZOL [Concomitant]
     Active Substance: PANTOPRAZOLE SODIUM
     Dosage: 40 MG, Q12H
     Route: 042
     Dates: start: 20151121
  68. DILAUDID [Concomitant]
     Active Substance: HYDROMORPHONE HYDROCHLORIDE
     Dosage: 2-4 MG, Q4H, PRN
     Route: 048
  69. ZANAFLEX [Concomitant]
     Active Substance: TIZANIDINE HYDROCHLORIDE
     Indication: PRODUCT USED FOR UNKNOWN INDICATION
     Dosage: 4 MG, Q8H, PRN
     Route: 048
     Dates: start: 20151101, end: 20151105
  70. XARELTO [Concomitant]
     Active Substance: RIVAROXABAN
     Indication: PRODUCT USED FOR UNKNOWN INDICATION
     Dosage: 1 DF, QD
     Route: 048
     Dates: start: 20151105, end: 20151105
  71. TEMAZEPAM. [Concomitant]
     Active Substance: TEMAZEPAM
     Indication: INSOMNIA
     Dosage: 15 MG, QH
     Route: 065
     Dates: start: 20150318
  72. SODIUM CHLORIDE. [Concomitant]
     Active Substance: SODIUM CHLORIDE
     Indication: PRODUCT USED FOR UNKNOWN INDICATION
     Dosage: 3 ML, PRN
     Route: 042
     Dates: start: 20151120, end: 20151123
  73. SODIUM CHLORIDE. [Concomitant]
     Active Substance: SODIUM CHLORIDE
     Indication: PRODUCT USED FOR UNKNOWN INDICATION
     Dosage: 3 ML, TID
     Route: 042
     Dates: start: 20151120
  74. DILAUDID [Concomitant]
     Active Substance: HYDROMORPHONE HYDROCHLORIDE
     Dosage: 1 MG, Q4H, PRN
     Route: 042
     Dates: start: 20151122
  75. PERCOCET [Concomitant]
     Active Substance: ACETAMINOPHEN\OXYCODONE HYDROCHLORIDE
     Indication: PRODUCT USED FOR UNKNOWN INDICATION
     Dosage: 2 DF, QD
     Route: 048
     Dates: start: 20151120, end: 20151120
  76. ONDANSETRON [Concomitant]
     Active Substance: ONDANSETRON
     Indication: PRODUCT USED FOR UNKNOWN INDICATION
     Dosage: 4 MG, Q4H, PRN
     Route: 042
     Dates: start: 20151027, end: 20151105
  77. LACTATED RINGERS [Concomitant]
     Active Substance: CALCIUM CHLORIDE\POTASSIUM CHLORIDE\SODIUM CHLORIDE\SODIUM LACTATE
     Indication: PRODUCT USED FOR UNKNOWN INDICATION
     Dosage: 125 ML/HR, CONTINUOUS
     Route: 042
     Dates: start: 20151027
  78. SODIUM CHLORIDE. [Concomitant]
     Active Substance: SODIUM CHLORIDE
     Dosage: 75 ML/HR CONTINUOUS
     Route: 041
     Dates: start: 20151121, end: 20151121
  79. SODIUM CHLORIDE. [Concomitant]
     Active Substance: SODIUM CHLORIDE
     Dosage: 3 ML, TID
     Route: 042
     Dates: start: 20151121
  80. DILAUDID [Concomitant]
     Active Substance: HYDROMORPHONE HYDROCHLORIDE
     Indication: PAIN
     Dosage: 1 MG, Q4H, PRN
     Route: 042
     Dates: start: 20151120
  81. VENOFER [Concomitant]
     Active Substance: IRON SUCROSE
     Dosage: 200 MG, QD
     Route: 042
     Dates: start: 20151121
  82. MORPHINE [Concomitant]
     Active Substance: MORPHINE
     Indication: PAIN
     Dosage: 2 MG, Q4H, PRN
     Route: 042
     Dates: start: 20111120, end: 20151123
  83. MORPHINE [Concomitant]
     Active Substance: MORPHINE
     Indication: CHEST PAIN
     Dosage: 2 MG, EVERY 5 MINS, PRN
     Route: 042
     Dates: start: 20151120, end: 20151123
  84. NITROSTAT [Concomitant]
     Active Substance: NITROGLYCERIN
     Indication: BLOOD PRESSURE SYSTOLIC INCREASED
  85. PANTOPRAZOL [Concomitant]
     Active Substance: PANTOPRAZOLE SODIUM
     Dosage: 40 MG, Q12H
     Route: 042
     Dates: start: 20151122
  86. DILAUDID [Concomitant]
     Active Substance: HYDROMORPHONE HYDROCHLORIDE
     Indication: PRODUCT USED FOR UNKNOWN INDICATION
     Dosage: 1 DF, Q3H, PRN
     Route: 048
     Dates: start: 20151103, end: 20151105
  87. DILAUDID [Concomitant]
     Active Substance: HYDROMORPHONE HYDROCHLORIDE
     Indication: PRODUCT USED FOR UNKNOWN INDICATION
     Dosage: 0.4 MG, Q2H, PRN
     Route: 042
     Dates: start: 20151029, end: 20151105
  88. DULCOLAX NOS [Concomitant]
     Active Substance: BISACODYL OR DOCUSATE SODIUM
     Indication: PRODUCT USED FOR UNKNOWN INDICATION
     Dosage: 10 MG, QD
     Route: 054
     Dates: start: 20151102

REACTIONS (21)
  - Flank pain [Recovered/Resolved]
  - Haemorrhage [Recovered/Resolved]
  - Blood calcium decreased [Unknown]
  - Abdominal wall haematoma [Recovered/Resolved]
  - Abdominal hernia [Recovered/Resolved]
  - Faecaloma [Unknown]
  - Protein total decreased [Unknown]
  - Iron deficiency anaemia [Recovered/Resolved]
  - Bundle branch block right [Unknown]
  - Sinus bradycardia [Unknown]
  - Hypotension [Unknown]
  - Leukopenia [Unknown]
  - Blood glucose increased [Recovered/Resolved]
  - Peripheral swelling [Recovered/Resolved]
  - Blood phosphorus increased [Unknown]
  - Blood creatine phosphokinase increased [Unknown]
  - Atelectasis [Unknown]
  - Jugular vein thrombosis [Recovered/Resolved]
  - Blood urea decreased [Recovered/Resolved]
  - Carbon dioxide decreased [Recovered/Resolved]
  - Lymphocyte count decreased [Unknown]

NARRATIVE: CASE EVENT DATE: 20151027
